FAERS Safety Report 5601366-7 (Version None)
Quarter: 2008Q1

REPORT INFORMATION
  Report Type: 
  Country: None (occurrence: None)
  Receive Date: 20080109
  Receipt Date: 20070404
  Transmission Date: 20080703
  Serious: Yes (Hospitalization)
  Sender: FDA-Public Use
  Company Number: WAES 0706USA05277

PATIENT
  Sex: Male

DRUGS (4)
  1. DECADRON [Suspect]
  2. CYTARABINE [Concomitant]
  3. PLATINOL [Concomitant]
  4. RITUXAN [Concomitant]

REACTIONS (1)
  - HYPERGLYCAEMIA [None]
